FAERS Safety Report 7497409-9 (Version None)
Quarter: 2011Q2

REPORT INFORMATION
  Report Type: 
  Country: None (occurrence: None)
  Receive Date: 20110523
  Receipt Date: 20110512
  Transmission Date: 20111010
  Serious: Yes (Other)
  Sender: FDA-Public Use
  Company Number: CHPA2011KR06740

PATIENT

DRUGS (1)
  1. THERAFLU SEVERE COLD NIGHTTIME POWDER [Suspect]
     Indication: NASOPHARYNGITIS
     Dosage: 2 POUCHES, UNK
     Route: 048

REACTIONS (2)
  - DYSPEPSIA [None]
  - FACE OEDEMA [None]
